FAERS Safety Report 22277985 (Version 1)
Quarter: 2023Q2

REPORT INFORMATION
  Report Type: Spontaneous
  Country: CN (occurrence: CN)
  Receive Date: 20230503
  Receipt Date: 20230503
  Transmission Date: 20230722
  Serious: Yes (Hospitalization, Other)
  Sender: FDA-Public Use
  Company Number: CN-GLAXOSMITHKLINE-CN2023APC060827

PATIENT

DRUGS (8)
  1. LAMICTAL [Suspect]
     Active Substance: LAMOTRIGINE
     Indication: Major depression
     Dosage: 25 MG, QD
     Route: 048
     Dates: start: 20230302, end: 20230307
  2. LAMICTAL [Suspect]
     Active Substance: LAMOTRIGINE
     Dosage: 12.5 MG, QD
     Route: 048
     Dates: start: 20230307, end: 20230308
  3. LAMICTAL [Suspect]
     Active Substance: LAMOTRIGINE
     Dosage: 25 MG, QD
     Route: 048
     Dates: start: 20230313, end: 20230321
  4. ZYPREXA [Concomitant]
     Active Substance: OLANZAPINE
     Indication: Major depression
     Dosage: 7.5 MG, QD
     Route: 048
     Dates: start: 20230316, end: 20230320
  5. ZYPREXA [Concomitant]
     Active Substance: OLANZAPINE
     Dosage: 2.5 MG, QD
     Route: 048
     Dates: start: 20230319, end: 20230319
  6. ZYPREXA [Concomitant]
     Active Substance: OLANZAPINE
     Dosage: 5 MG, QD
     Route: 048
     Dates: start: 20230320, end: 20230323
  7. ZYPREXA [Concomitant]
     Active Substance: OLANZAPINE
     Dosage: 2.5 MG, QD
     Route: 048
     Dates: start: 20230323, end: 20230404
  8. LEXAPRO [Concomitant]
     Active Substance: ESCITALOPRAM OXALATE
     Indication: Major depression
     Dosage: 10 MG, QD,ORAL
     Route: 048
     Dates: start: 20230302, end: 20230324

REACTIONS (10)
  - Rash [Recovered/Resolved]
  - Pyrexia [Recovered/Resolved]
  - Hepatic enzyme increased [Recovered/Resolved]
  - Transaminases increased [Recovered/Resolved]
  - Hepatic function abnormal [Recovered/Resolved]
  - Drug hypersensitivity [Recovered/Resolved]
  - Pruritus [Unknown]
  - Body temperature increased [Recovered/Resolved]
  - Blood albumin decreased [Unknown]
  - Blood potassium decreased [Unknown]

NARRATIVE: CASE EVENT DATE: 20230320
